FAERS Safety Report 4446879-9 (Version None)
Quarter: 2004Q3

REPORT INFORMATION
  Report Type: 
  Country: None (occurrence: None)
  Receive Date: 20040908
  Receipt Date: 20040826
  Transmission Date: 20050211
  Serious: Yes (Disabling, Other)
  Sender: FDA-Public Use
  Company Number: 2004060689

PATIENT
  Age: 69 Year
  Sex: Female
  Weight: 69.5 kg

DRUGS (13)
  1. ATORVASTATIN (ATORVASTATIN) [Suspect]
     Indication: BLOOD CHOLESTEROL INCREASED
     Dosage: (1 IN 1 D), ORAL
     Route: 048
     Dates: start: 20040326, end: 20040817
  2. NULYTELY (MACROGOL, POTASSIUM CHLORIDE, SODIUM BICARBONATE,  SODIUM CH [Concomitant]
  3. DICLOFENAC SODIUM [Concomitant]
  4. METOCLOPRAMIDE HYDROCHLORIDE [Concomitant]
  5. ACETAMINOPHEN [Concomitant]
  6. MORPHINE SULFATE [Concomitant]
  7. LISINOPRIL [Concomitant]
  8. INDAPAMIDE [Concomitant]
  9. CARBOMER (CARBOMER) [Concomitant]
  10. HYDROCORTISONE [Concomitant]
  11. EMOLLIENTS AND PROTECTIVES (EMOLLIENTS AND PROTECTIVES) [Concomitant]
  12. GLIPIZIDE [Concomitant]
  13. CODEINE PHOSPHATE (CODEINE PHOSPHATE) [Concomitant]

REACTIONS (1)
  - PANCREATITIS [None]
